FAERS Safety Report 8840621 (Version 1)
Quarter: 2012Q4

REPORT INFORMATION
  Report Type: 
  Country: US (occurrence: US)
  Receive Date: 20121015
  Receipt Date: 20121015
  Transmission Date: 20130627
  Serious: Yes (Other)
  Sender: FDA-Public Use
  Company Number: US-ROCHE-1112421

PATIENT
  Sex: Female

DRUGS (3)
  1. NUTROPIN [Suspect]
     Indication: DWARFISM
     Route: 065
  2. METHOTREXATE [Concomitant]
  3. PREDNISONE [Concomitant]

REACTIONS (3)
  - Haemorrhagic stroke [Unknown]
  - Tremor [Unknown]
  - Malaise [Unknown]
